FAERS Safety Report 11231073 (Version 1)
Quarter: 2015Q2

REPORT INFORMATION
  Report Type: Spontaneous
  Country: US (occurrence: None)
  Receive Date: 20150629
  Receipt Date: 20150629
  Transmission Date: 20150821
  Serious: Yes (Disabling)
  Sender: FDA-Public Use
  Company Number: None

PATIENT
  Age: 33 Year
  Sex: Female
  Weight: 88 kg

DRUGS (3)
  1. DICLEGIS [Suspect]
     Active Substance: DOXYLAMINE SUCCINATE\PYRIDOXINE HYDROCHLORIDE
     Indication: VOMITING
     Dosage: 2 PILLS
     Route: 048
     Dates: start: 20150617, end: 20150618
  2. PRENATAL VITAMINS [Concomitant]
     Active Substance: VITAMINS
  3. DICLEGIS [Suspect]
     Active Substance: DOXYLAMINE SUCCINATE\PYRIDOXINE HYDROCHLORIDE
     Indication: NAUSEA
     Dosage: 2 PILLS
     Route: 048
     Dates: start: 20150617, end: 20150618

REACTIONS (3)
  - Urinary tract infection [None]
  - Maternal exposure timing unspecified [None]
  - Foetal heart rate abnormal [None]

NARRATIVE: CASE EVENT DATE: 20150619
